FAERS Safety Report 8814168 (Version 1)
Quarter: 2012Q4

REPORT INFORMATION
  Report Type: 
  Country: FR (occurrence: FR)
  Receive Date: 20120928
  Receipt Date: 20120928
  Transmission Date: 20130627
  Serious: Yes (Hospitalization, Other)
  Sender: FDA-Public Use
  Company Number: FR-JNJFOC-20120911515

PATIENT
  Age: 44 None
  Sex: Male

DRUGS (8)
  1. CONTRAMAL [Suspect]
     Indication: BURSITIS
     Route: 048
     Dates: start: 201110, end: 20120707
  2. CONTRAMAL [Suspect]
     Indication: BURSITIS
     Dosage: 150 mg, 7-8 doses, 1/day
     Route: 048
  3. TRAMADOL HYDROCHLORIDE [Suspect]
     Indication: PRODUCT USED FOR UNKNOWN INDICATION
     Dosage: 7-8 DF/ per day
     Route: 065
     Dates: start: 201005, end: 201005
  4. EDUCTYL [Concomitant]
     Indication: PRODUCT USED FOR UNKNOWN INDICATION
     Route: 054
  5. LIDOCAIN [Concomitant]
     Indication: PRODUCT USED FOR UNKNOWN INDICATION
     Route: 061
  6. LEXOMIL [Concomitant]
     Indication: PRODUCT USED FOR UNKNOWN INDICATION
     Route: 048
  7. NEURONTIN [Concomitant]
     Indication: PRODUCT USED FOR UNKNOWN INDICATION
     Route: 048
  8. DOLIPRANE [Concomitant]
     Indication: PRODUCT USED FOR UNKNOWN INDICATION
     Route: 048

REACTIONS (3)
  - Epilepsy [Recovered/Resolved]
  - Epilepsy [Recovered/Resolved]
  - Overdose [Recovered/Resolved]
